FAERS Safety Report 5477893-2 (Version None)
Quarter: 2007Q4

REPORT INFORMATION
  Report Type: 
  Country: None (occurrence: None)
  Receive Date: 20071005
  Receipt Date: 20070927
  Transmission Date: 20080405
  Serious: Yes (Hospitalization)
  Sender: FDA-Public Use
  Company Number: PHBS2007BR16035

PATIENT
  Age: 26 Year
  Sex: Female

DRUGS (4)
  1. TEGRETOL CR [Suspect]
     Indication: BIPOLAR DISORDER
     Dosage: 200 MG, QHS
     Route: 048
  2. TEGRETOL CR [Suspect]
     Dosage: 400 MG, QHS
     Route: 048
  3. TEGRETOL CR [Suspect]
     Dosage: 200 MG, BID
     Route: 048
  4. RIVOTRIL [Concomitant]
     Indication: DEPRESSION
     Dosage: 5 DRP, TID
     Route: 048

REACTIONS (3)
  - DEPRESSION [None]
  - ROAD TRAFFIC ACCIDENT [None]
  - SOMNOLENCE [None]
